FAERS Safety Report 4804888-1 (Version None)
Quarter: 2005Q4

REPORT INFORMATION
  Report Type: 
  Country: None (occurrence: None)
  Receive Date: 20051020
  Receipt Date: 20051014
  Transmission Date: 20060501
  Serious: Yes (Hospitalization)
  Sender: FDA-Public Use
  Company Number: FR-BRISTOL-MYERS SQUIBB COMPANY-13145271

PATIENT
  Age: 51 Year
  Sex: Female
  Weight: 49 kg

DRUGS (5)
  1. SUSTIVA [Suspect]
     Indication: HIV INFECTION
     Route: 048
     Dates: start: 20010101, end: 20050805
  2. VIDEX EC [Suspect]
     Indication: HIV INFECTION
     Route: 048
     Dates: start: 20000101, end: 20050805
  3. VIREAD [Suspect]
     Indication: HIV INFECTION
     Dates: start: 20041015, end: 20050805
  4. NORVIR [Suspect]
     Indication: HIV INFECTION
     Dates: start: 20050805, end: 20050808
  5. EPIVIR [Suspect]
     Indication: HIV INFECTION
     Dates: start: 20050808, end: 20050808

REACTIONS (3)
  - HEPATITIS [None]
  - LACTIC ACIDOSIS [None]
  - RENAL FAILURE ACUTE [None]
